FAERS Safety Report 19659774 (Version 1)
Quarter: 2021Q3

REPORT INFORMATION
  Report Type: Report from Study
  Country: None (occurrence: US)
  Receive Date: 20210805
  Receipt Date: 20210805
  Transmission Date: 20211014
  Serious: Yes (Other)
  Sender: FDA-Public Use
  Company Number: US-ABBVIE-21K-163-4017463-00

PATIENT
  Sex: Male

DRUGS (2)
  1. HUMIRA [Suspect]
     Active Substance: ADALIMUMAB
     Indication: PSORIATIC ARTHROPATHY
     Dosage: CITRATE FREE
     Route: 058
  2. COVID?19 VACCINE [Concomitant]
     Indication: COVID-19 IMMUNISATION
     Route: 030

REACTIONS (10)
  - Hepatic cirrhosis [Not Recovered/Not Resolved]
  - Amnesia [Unknown]
  - Diabetes mellitus [Unknown]
  - Psoriasis [Recovered/Resolved]
  - Post-traumatic stress disorder [Unknown]
  - Mood altered [Not Recovered/Not Resolved]
  - Inappropriate schedule of product administration [Unknown]
  - Sleep deficit [Not Recovered/Not Resolved]
  - Accident [Unknown]
  - Head injury [Not Recovered/Not Resolved]

NARRATIVE: CASE EVENT DATE: 2000
